FAERS Safety Report 19525992 (Version 1)
Quarter: 2021Q3

REPORT INFORMATION
  Report Type: Spontaneous
  Country: DE (occurrence: DE)
  Receive Date: 20210713
  Receipt Date: 20210713
  Transmission Date: 20211014
  Serious: Yes (Hospitalization, Other)
  Sender: FDA-Public Use
  Company Number: DE-MSNLABS-2021MSNLIT00236

PATIENT

DRUGS (4)
  1. DIMETHYL FUMARATE DELAYED RELEASE CAPSULES 240MG [Suspect]
     Active Substance: DIMETHYL FUMARATE
     Indication: RELAPSING-REMITTING MULTIPLE SCLEROSIS
  2. GANCICLOVIR. [Interacting]
     Active Substance: GANCICLOVIR
     Indication: CYTOMEGALOVIRUS INFECTION
     Route: 042
  3. CEFTRIAXONE. [Interacting]
     Active Substance: CEFTRIAXONE
     Indication: UROSEPSIS
     Route: 065
  4. DIMETHYL FUMARATE DELAYED RELEASE CAPSULES 240MG [Suspect]
     Active Substance: DIMETHYL FUMARATE
     Indication: MULTIPLE SCLEROSIS
     Route: 065
     Dates: start: 202004, end: 202101

REACTIONS (6)
  - Meningitis viral [Recovering/Resolving]
  - Cytomegalovirus infection [Recovering/Resolving]
  - Urosepsis [Recovering/Resolving]
  - C-reactive protein increased [Recovering/Resolving]
  - Procalcitonin increased [Recovering/Resolving]
  - Lymphopenia [Recovering/Resolving]
